FAERS Safety Report 10151072 (Version 2)
Quarter: 2014Q2

REPORT INFORMATION
  Report Type: Report from Study
  Country: AU (occurrence: AU)
  Receive Date: 20140502
  Receipt Date: 20140502
  Transmission Date: 20141212
  Serious: Yes (Hospitalization)
  Sender: FDA-Public Use
  Company Number: AU-BRISTOL-MYERS SQUIBB COMPANY-20565578

PATIENT
  Age: 63 Year
  Sex: Male
  Weight: 94.5 kg

DRUGS (8)
  1. NIVOLUMAB [Suspect]
     Indication: METASTATIC MALIGNANT MELANOMA
     Dosage: 07MAR2014?97/292MG-IV
     Route: 042
     Dates: start: 20131206
  2. IPILIMUMAB [Suspect]
     Indication: METASTATIC MALIGNANT MELANOMA
     Dosage: 28FEB2014-292 MG
     Route: 042
     Dates: start: 20131206
  3. BLINDED: PLACEBO [Suspect]
     Indication: METASTATIC MALIGNANT MELANOMA
     Dosage: 07MAR2014
     Route: 042
     Dates: start: 20131206
  4. PREDNISOLONE [Concomitant]
     Dosage: INTRPTD ON 11MAR14 2.5MG
     Dates: start: 20140304, end: 20140310
  5. METHYLPREDNISOLONE [Concomitant]
     Dates: start: 20140321
  6. PANTOPRAZOLE [Concomitant]
  7. CEPHAZOLIN [Concomitant]
  8. LORATADINE [Concomitant]

REACTIONS (2)
  - Pemphigoid [Recovered/Resolved with Sequelae]
  - Transaminases increased [Unknown]
